FAERS Safety Report 7151208-6 (Version None)
Quarter: 2010Q4

REPORT INFORMATION
  Report Type: 
  Country: None (occurrence: None)
  Receive Date: 20101210
  Receipt Date: 20101203
  Transmission Date: 20110411
  Serious: Yes (Hospitalization)
  Sender: FDA-Public Use
  Company Number: US-US-EMD SERONO, INC.-234364K09USA

PATIENT
  Sex: Female
  Weight: 68 kg

DRUGS (8)
  1. REBIF [Suspect]
     Indication: MULTIPLE SCLEROSIS
     Route: 058
     Dates: start: 20070622
  2. SYNTHROID [Concomitant]
     Indication: HYPOTHYROIDISM
     Dates: start: 20020101
  3. IBUPROFEN [Concomitant]
     Indication: PREMEDICATION
     Dates: start: 20070101
  4. IBUPROFEN [Concomitant]
     Indication: MYALGIA
  5. IBUPROFEN [Concomitant]
     Indication: MUSCULOSKELETAL STIFFNESS
  6. PRILOSEC [Concomitant]
     Indication: GASTROOESOPHAGEAL REFLUX DISEASE
  7. ACYCLOVIR SODIUM [Concomitant]
     Indication: ORAL HERPES
     Dates: start: 20080101
  8. CLARITIN [Concomitant]
     Indication: SINUS DISORDER

REACTIONS (6)
  - HEART RATE INCREASED [None]
  - HYPERTENSION [None]
  - HYPOTHYROIDISM [None]
  - MIGRAINE [None]
  - MUSCULOSKELETAL STIFFNESS [None]
  - MYALGIA [None]
